FAERS Safety Report 6440082-9 (Version None)
Quarter: 2009Q4

REPORT INFORMATION
  Report Type: 
  Country: None (occurrence: None)
  Receive Date: 20091113
  Receipt Date: 20090603
  Transmission Date: 20100525
  Serious: No
  Sender: FDA-Public Use
  Company Number: A0737241A

PATIENT
  Sex: Female

DRUGS (1)
  1. COREG [Suspect]
     Indication: CARDIOMYOPATHY
     Route: 048

REACTIONS (1)
  - DRUG EXPOSURE DURING PREGNANCY [None]
